FAERS Safety Report 13620726 (Version 5)
Quarter: 2017Q3

REPORT INFORMATION
  Report Type: Report from Study
  Country: US (occurrence: US)
  Receive Date: 20170607
  Receipt Date: 20170927
  Transmission Date: 20171127
  Serious: Yes (Hospitalization, Other)
  Sender: FDA-Public Use
  Company Number: US-GILEAD-2017-0276168

PATIENT
  Age: 72 Year
  Sex: Female

DRUGS (2)
  1. COUMADIN [Concomitant]
     Active Substance: WARFARIN SODIUM
  2. AMBRISENTAN [Suspect]
     Active Substance: AMBRISENTAN
     Indication: PRODUCT USED FOR UNKNOWN INDICATION
     Dosage: 5 MG, QD
     Route: 065
     Dates: start: 20071107

REACTIONS (20)
  - Fall [Not Recovered/Not Resolved]
  - Spinal operation [Unknown]
  - Knee arthroplasty [Unknown]
  - Joint range of motion decreased [Unknown]
  - Chest pain [Not Recovered/Not Resolved]
  - Exercise tolerance decreased [Not Recovered/Not Resolved]
  - Limb operation [Unknown]
  - Gait disturbance [Unknown]
  - Cough [Not Recovered/Not Resolved]
  - Rotator cuff syndrome [Unknown]
  - Limb injury [Unknown]
  - Arthropathy [Unknown]
  - Syncope [Unknown]
  - Fatigue [Not Recovered/Not Resolved]
  - Dizziness [Not Recovered/Not Resolved]
  - Oedema [Not Recovered/Not Resolved]
  - Back pain [Unknown]
  - Dyspnoea [Not Recovered/Not Resolved]
  - Dyspnoea exertional [Not Recovered/Not Resolved]
  - Limb crushing injury [Unknown]
